FAERS Safety Report 14542340 (Version 1)
Quarter: 2018Q1

REPORT INFORMATION
  Report Type: Spontaneous
  Country: CA (occurrence: CA)
  Receive Date: 20180216
  Receipt Date: 20180216
  Transmission Date: 20180509
  Serious: Yes (Hospitalization, Other)
  Sender: FDA-Public Use
  Company Number: CA-OTSUKA-DJ201304676

PATIENT

DRUGS (1)
  1. ABILIFY [Suspect]
     Active Substance: ARIPIPRAZOLE
     Indication: BIPOLAR DISORDER
     Route: 065
     Dates: start: 2013, end: 20131102

REACTIONS (5)
  - Palpitations [Unknown]
  - Amnesia [Not Recovered/Not Resolved]
  - Loss of consciousness [Unknown]
  - Paralysis [Unknown]
  - Sensory loss [Unknown]

NARRATIVE: CASE EVENT DATE: 2013
